FAERS Safety Report 11243815 (Version 1)
Quarter: 2015Q3

REPORT INFORMATION
  Report Type: Spontaneous
  Country: US (occurrence: None)
  Receive Date: 20150702
  Receipt Date: 20150702
  Transmission Date: 20151125
  Serious: Yes (Hospitalization)
  Sender: FDA-Public Use
  Company Number: None

PATIENT
  Age: 60 Year
  Sex: Male
  Weight: 72.2 kg

DRUGS (1)
  1. CYCLOPHOSPHAMIDE. [Suspect]
     Active Substance: CYCLOPHOSPHAMIDE
     Indication: PLASMA CELL MYELOMA
     Route: 048
     Dates: start: 20150325

REACTIONS (11)
  - Tachycardia [None]
  - Haematochezia [None]
  - Vomiting [None]
  - Hypophagia [None]
  - Back pain [None]
  - Condition aggravated [None]
  - Diarrhoea [None]
  - Nausea [None]
  - Pain in extremity [None]
  - Gastroenteritis viral [None]
  - Leukocytosis [None]

NARRATIVE: CASE EVENT DATE: 20150623
